FAERS Safety Report 17153724 (Version 2)
Quarter: 2020Q1

REPORT INFORMATION
  Report Type: Spontaneous
  Country: RU (occurrence: RU)
  Receive Date: 20191213
  Receipt Date: 20200205
  Transmission Date: 20200409
  Serious: Yes (Hospitalization, Other)
  Sender: FDA-Public Use
  Company Number: RU-NOVOPROD-701117

PATIENT
  Age: 41 Year
  Sex: Female
  Weight: 99 kg

DRUGS (3)
  1. SAXENDA [Suspect]
     Active Substance: LIRAGLUTIDE
     Indication: INSULIN RESISTANCE
  2. LORISTA [Concomitant]
     Active Substance: LOSARTAN POTASSIUM
     Dosage: 50 MG, QD (MORNING)
     Dates: start: 20191130, end: 20191206
  3. SAXENDA [Suspect]
     Active Substance: LIRAGLUTIDE
     Indication: OBESITY
     Dosage: 0.6 MG, QD
     Route: 058
     Dates: start: 20191130, end: 20191130

REACTIONS (2)
  - Hyperaemia [Recovered/Resolved]
  - Angioedema [Recovered/Resolved]

NARRATIVE: CASE EVENT DATE: 20191130
